FAERS Safety Report 4899133-5 (Version None)
Quarter: 2006Q1

REPORT INFORMATION
  Report Type: 
  Country: None (occurrence: None)
  Receive Date: 20060202
  Receipt Date: 20051019
  Transmission Date: 20060701
  Serious: Yes (Other)
  Sender: FDA-Public Use
  Company Number: GBWYE070219OCT05

PATIENT
  Sex: Female

DRUGS (5)
  1. ENBREL [Suspect]
     Indication: PSORIATIC ARTHROPATHY
     Dosage: UNKNOWN
     Route: 065
     Dates: start: 20050713
  2. ENBREL [Suspect]
     Dosage: UNKNOWN
     Route: 058
     Dates: start: 20050713
  3. METHOTREXATE [Concomitant]
     Dates: start: 19960125
  4. CELEBREX [Concomitant]
     Dates: start: 20041110
  5. TRAMADOL HCL [Concomitant]
     Dates: start: 20051001

REACTIONS (1)
  - AMENORRHOEA [None]
